FAERS Safety Report 11205005 (Version 1)
Quarter: 2015Q2

REPORT INFORMATION
  Report Type: Spontaneous
  Country: US (occurrence: US)
  Receive Date: 20150622
  Receipt Date: 20150622
  Transmission Date: 20150821
  Serious: Yes (Hospitalization)
  Sender: FDA-Public Use
  Company Number: US-SA-2015SA087134

PATIENT
  Age: 69 Year
  Sex: Male

DRUGS (1)
  1. BCG FOR IMMUNOTHERAPY [Suspect]
     Active Substance: BACILLUS CALMETTE-GUERIN ANTIGEN, UNSPECIFIED SUBSTRAIN
     Indication: BLADDER CANCER
     Route: 043

REACTIONS (11)
  - Weight decreased [Unknown]
  - Influenza like illness [Unknown]
  - Alveolitis allergic [Recovering/Resolving]
  - Cough [Unknown]
  - Mycobacterium tuberculosis complex test positive [Recovering/Resolving]
  - Fatigue [Unknown]
  - Bovine tuberculosis [Recovering/Resolving]
  - Asthenia [Unknown]
  - Dyspnoea [Unknown]
  - Granuloma [Recovering/Resolving]
  - Sarcoidosis [Recovering/Resolving]
